FAERS Safety Report 12218252 (Version 4)
Quarter: 2016Q2

REPORT INFORMATION
  Report Type: Spontaneous
  Country: US (occurrence: US)
  Receive Date: 20160329
  Receipt Date: 20160615
  Transmission Date: 20160815
  Serious: Yes (Life-Threatening, Hospitalization, Other)
  Sender: FDA-Public Use
  Company Number: US-ASTRAZENECA-2016SE31624

PATIENT
  Age: 67 Year
  Sex: Female
  Weight: 71.7 kg

DRUGS (28)
  1. TOPROL XL [Suspect]
     Active Substance: METOPROLOL SUCCINATE
     Indication: ARRHYTHMIA
     Dosage: 25.0MG UNKNOWN
     Route: 048
  2. TOPROL XL [Suspect]
     Active Substance: METOPROLOL SUCCINATE
     Indication: ARRHYTHMIA
     Dosage: 50 MG IN THE MORNING AND TOPROL XL 25MG AT NIGHT. UNKNOWN
     Route: 048
  3. TOPROL XL [Suspect]
     Active Substance: METOPROLOL SUCCINATE
     Indication: ARRHYTHMIA
     Dosage: 37.5MG UNKNOWN
     Route: 048
     Dates: start: 2006
  4. ASPIRIN. [Concomitant]
     Active Substance: ASPIRIN
     Indication: ILL-DEFINED DISORDER
     Route: 048
     Dates: start: 2006
  5. TOPROL XL [Suspect]
     Active Substance: METOPROLOL SUCCINATE
     Indication: ARRHYTHMIA
     Dosage: 25.0MG UNKNOWN
     Route: 048
     Dates: start: 20160406
  6. TOPROL XL [Suspect]
     Active Substance: METOPROLOL SUCCINATE
     Indication: HYPERTENSION
     Dosage: 25.0MG UNKNOWN
     Route: 048
     Dates: start: 20160406
  7. TOPROL XL [Suspect]
     Active Substance: METOPROLOL SUCCINATE
     Indication: HYPERTENSION
     Dosage: GENERIC
     Route: 048
  8. TOPROL XL [Suspect]
     Active Substance: METOPROLOL SUCCINATE
     Indication: ARRHYTHMIA
     Route: 048
  9. OMEGA XL [Concomitant]
     Active Substance: DIETARY SUPPLEMENT
     Indication: ILL-DEFINED DISORDER
     Dosage: 4.0DF UNKNOWN
  10. DYAZIDE [Concomitant]
     Active Substance: HYDROCHLOROTHIAZIDE\TRIAMTERENE
  11. TOPROL XL [Suspect]
     Active Substance: METOPROLOL SUCCINATE
     Indication: HYPERTENSION
     Dosage: 50.0MG UNKNOWN
     Route: 048
  12. TOPROL XL [Suspect]
     Active Substance: METOPROLOL SUCCINATE
     Indication: HYPERTENSION
     Dosage: 37.5MG UNKNOWN
     Route: 048
     Dates: start: 2006
  13. TOPROL XL [Suspect]
     Active Substance: METOPROLOL SUCCINATE
     Indication: HYPERTENSION
     Dosage: GENERIC TOPROL XL
     Route: 048
  14. TOPROL XL [Suspect]
     Active Substance: METOPROLOL SUCCINATE
     Indication: ARRHYTHMIA
     Dosage: GENERIC
     Route: 048
  15. TOPROL XL [Suspect]
     Active Substance: METOPROLOL SUCCINATE
     Indication: HYPERTENSION
     Route: 048
  16. METOPROLOL ER SUCCINATE [Suspect]
     Active Substance: METOPROLOL SUCCINATE
     Dosage: 50 MG IN THE MORNING AND 100 MG IN THE EVENING
     Route: 065
  17. KROEGER COMPLETE STRENGTH [Concomitant]
     Route: 048
  18. TOPROL XL [Suspect]
     Active Substance: METOPROLOL SUCCINATE
     Indication: ARRHYTHMIA
     Dosage: 50.0MG UNKNOWN
     Route: 048
  19. TOPROL XL [Suspect]
     Active Substance: METOPROLOL SUCCINATE
     Indication: ARRHYTHMIA
     Dosage: GENERIC TOPROL XL
     Route: 048
  20. VITAMIN SUPPLEMENT [Concomitant]
     Active Substance: VITAMINS
     Indication: SUPPLEMENTATION THERAPY
     Route: 048
  21. TOPROL XL [Suspect]
     Active Substance: METOPROLOL SUCCINATE
     Indication: HYPERTENSION
     Dosage: 50 MG IN THE MORNING AND TOPROL XL 25MG AT NIGHT. UNKNOWN
     Route: 048
  22. TOPROL XL [Suspect]
     Active Substance: METOPROLOL SUCCINATE
     Indication: ARRHYTHMIA
     Route: 048
  23. WARFARIN [Concomitant]
     Active Substance: WARFARIN
     Indication: ANTICOAGULANT THERAPY
  24. TOPROL XL [Suspect]
     Active Substance: METOPROLOL SUCCINATE
     Indication: HYPERTENSION
     Dosage: 25.0MG UNKNOWN
     Route: 048
  25. TOPROL XL [Suspect]
     Active Substance: METOPROLOL SUCCINATE
     Indication: HYPERTENSION
     Route: 048
  26. HYDROCHLOROTHIAZIDE. [Concomitant]
     Active Substance: HYDROCHLOROTHIAZIDE
     Indication: DIURETIC THERAPY
     Dates: start: 2006
  27. NATURE BOUNTY BIOTIN [Concomitant]
     Indication: ILL-DEFINED DISORDER
     Dosage: 5000 UG QOD
     Route: 048
  28. TRIPLE STRENGTH CRANBERRY PILLS [Concomitant]
     Indication: ILL-DEFINED DISORDER
     Dosage: 36 DF QOD
     Route: 048

REACTIONS (23)
  - Malaise [Not Recovered/Not Resolved]
  - Blood pressure decreased [Recovered/Resolved]
  - Onychomadesis [Unknown]
  - Weight decreased [Not Recovered/Not Resolved]
  - Cardiac disorder [Unknown]
  - Angina pectoris [Unknown]
  - Product use issue [Unknown]
  - Off label use [Unknown]
  - Renal disorder [Unknown]
  - Sleep disorder [Unknown]
  - Heart rate decreased [Recovered/Resolved]
  - Dehydration [Unknown]
  - Alopecia [Unknown]
  - Weight increased [Recovered/Resolved]
  - Muscle spasms [Unknown]
  - Circumstance or information capable of leading to medication error [Unknown]
  - Product packaging issue [Unknown]
  - Red blood cell count increased [Unknown]
  - Joint injury [Unknown]
  - Nephrolithiasis [Unknown]
  - Arteriosclerosis coronary artery [Unknown]
  - Fall [Unknown]
  - Stress [Unknown]

NARRATIVE: CASE EVENT DATE: 2006
